FAERS Safety Report 15189040 (Version 1)
Quarter: 2018Q3

REPORT INFORMATION
  Report Type: Report from Study
  Country: CN (occurrence: CN)
  Receive Date: 20180724
  Receipt Date: 20180724
  Transmission Date: 20181010
  Serious: Yes (Other)
  Sender: FDA-Public Use
  Company Number: CN-ROCHE-2157789

PATIENT

DRUGS (14)
  1. VINCRISTINE [Suspect]
     Active Substance: VINCRISTINE
     Indication: GASTROINTESTINAL LYMPHOMA
  2. PREDNISONE. [Suspect]
     Active Substance: PREDNISONE
     Indication: DIFFUSE LARGE B-CELL LYMPHOMA
     Dosage: FROM DAY 1 TO DAY 14
     Route: 048
  3. CYCLOPHOSPHAMIDE. [Suspect]
     Active Substance: CYCLOPHOSPHAMIDE
     Indication: GASTROINTESTINAL LYMPHOMA
  4. VINORELBINE [Suspect]
     Active Substance: VINORELBINE\VINORELBINE TARTRATE
     Indication: GASTROINTESTINAL LYMPHOMA
  5. RITUXIMAB. [Suspect]
     Active Substance: RITUXIMAB
     Indication: DIFFUSE LARGE B-CELL LYMPHOMA
     Dosage: ONE DAY BEFORE CHEMOTHERAPY
     Route: 041
  6. RITUXIMAB. [Suspect]
     Active Substance: RITUXIMAB
     Indication: GASTROINTESTINAL LYMPHOMA
  7. VINCRISTINE [Suspect]
     Active Substance: VINCRISTINE
     Indication: DIFFUSE LARGE B-CELL LYMPHOMA
     Dosage: ON DAY 1 AND DAY 8
     Route: 041
  8. PREDNISONE. [Suspect]
     Active Substance: PREDNISONE
     Indication: GASTROINTESTINAL LYMPHOMA
     Dosage: FROM DAY 1 TO DAY 14
     Route: 048
  9. EPIRUBICIN HYDROCHLORIDE. [Suspect]
     Active Substance: EPIRUBICIN HYDROCHLORIDE
     Indication: DIFFUSE LARGE B-CELL LYMPHOMA
     Dosage: ON DAY 1 AND DAY 8
     Route: 041
  10. CYCLOPHOSPHAMIDE. [Suspect]
     Active Substance: CYCLOPHOSPHAMIDE
     Indication: DIFFUSE LARGE B-CELL LYMPHOMA
     Dosage: ON DAY 1 AND DAY 8
     Route: 041
  11. VINORELBINE [Suspect]
     Active Substance: VINORELBINE\VINORELBINE TARTRATE
     Indication: DIFFUSE LARGE B-CELL LYMPHOMA
     Dosage: ON DAY 1 AND DAY 8
     Route: 041
  12. EPIRUBICIN HYDROCHLORIDE. [Suspect]
     Active Substance: EPIRUBICIN HYDROCHLORIDE
     Indication: GASTROINTESTINAL LYMPHOMA
  13. PIRARUBICIN [Suspect]
     Active Substance: PIRARUBICIN
     Indication: DIFFUSE LARGE B-CELL LYMPHOMA
     Dosage: ON DAY 1 AND DAY 8
     Route: 041
  14. PIRARUBICIN [Suspect]
     Active Substance: PIRARUBICIN
     Indication: GASTROINTESTINAL LYMPHOMA

REACTIONS (9)
  - Vomiting [Unknown]
  - Alopecia [Unknown]
  - Phlebitis [Unknown]
  - Hepatic function abnormal [Unknown]
  - Neuropathy peripheral [Unknown]
  - Electrocardiogram abnormal [Unknown]
  - Renal impairment [Unknown]
  - Haematotoxicity [Unknown]
  - Nausea [Unknown]
